FAERS Safety Report 9270214 (Version 3)
Quarter: 2013Q2

REPORT INFORMATION
  Report Type: Spontaneous
  Country: JP (occurrence: JP)
  Receive Date: 20130503
  Receipt Date: 20130528
  Transmission Date: 20140414
  Serious: Yes (Hospitalization)
  Sender: FDA-Public Use
  Company Number: JP-GLAXOSMITHKLINE-B0888169A

PATIENT
  Age: 83 Year
  Sex: Male
  Weight: 40 kg

DRUGS (1)
  1. VALTREX [Suspect]
     Indication: HERPES ZOSTER
     Dosage: 500MG PER DAY
     Route: 048
     Dates: start: 20130420, end: 20130421

REACTIONS (2)
  - Toxic encephalopathy [Recovered/Resolved]
  - Altered state of consciousness [Recovering/Resolving]
